FAERS Safety Report 8367592-1 (Version None)
Quarter: 2012Q1

REPORT INFORMATION
  Report Type: 
  Country: None (occurrence: None)
  Receive Date: 20120323
  Receipt Date: 20111223
  Transmission Date: 20120608
  Serious: Yes (Hospitalization)
  Sender: FDA-Public Use
  Company Number: 163-21880-11080064

PATIENT
  Age: 46 Year
  Sex: Male
  Weight: 79.3795 kg

DRUGS (8)
  1. ASA (ACETYLSALICYIC ACID) [Concomitant]
  2. TRAZODONE HCL [Concomitant]
  3. REVLIMID [Suspect]
     Indication: MULTIPLE MYELOMA
     Dosage: 25 MG, DAILY X 21 DAYS/7 DAYS OFF, PO
     Route: 048
     Dates: start: 20110701, end: 20111101
  4. DEXAMETHASONE [Concomitant]
  5. SYNTHROID [Suspect]
     Indication: HYPOTHYROIDISM
     Dosage: 112 UG, QD
  6. ZOMETA [Concomitant]
  7. MELATONIN (MELATONIN) [Concomitant]
  8. LEVOTHYROXINE SODIUM [Concomitant]

REACTIONS (2)
  - BLOOD CALCIUM DECREASED [None]
  - DRY MOUTH [None]
